FAERS Safety Report 12669398 (Version 4)
Quarter: 2016Q4

REPORT INFORMATION
  Report Type: Spontaneous
  Country: JP (occurrence: JP)
  Receive Date: 20160819
  Receipt Date: 20161202
  Transmission Date: 20170207
  Serious: Yes (Other)
  Sender: FDA-Public Use
  Company Number: JP-UCBSA-2016025292

PATIENT
  Age: 63 Year
  Sex: Male

DRUGS (14)
  1. E KEPPRA [Suspect]
     Active Substance: LEVETIRACETAM
     Dosage: 1500 MG DAILY
     Route: 048
     Dates: start: 20140624, end: 20141110
  2. SODIUM VALPROATE [Suspect]
     Active Substance: VALPROATE SODIUM
     Dosage: 1000 MG, ONCE DAILY (QD)
     Route: 048
     Dates: start: 20160412, end: 20160523
  3. E KEPPRA [Suspect]
     Active Substance: LEVETIRACETAM
     Dosage: 2500 MG DAILY
     Route: 048
     Dates: start: 20150908, end: 20160229
  4. SODIUM VALPROATE [Suspect]
     Active Substance: VALPROATE SODIUM
     Indication: PRODUCT USED FOR UNKNOWN INDICATION
     Dosage: 1000 MG DAILY
     Route: 048
     Dates: end: 20150316
  5. LANDSEN [Suspect]
     Active Substance: CLONAZEPAM
     Indication: PRODUCT USED FOR UNKNOWN INDICATION
     Dosage: 1 MG DAILY
     Route: 048
     Dates: start: 20160720
  6. SODIUM VALPROATE [Suspect]
     Active Substance: VALPROATE SODIUM
     Dosage: 200 MG DAILY
     Route: 048
     Dates: start: 20150317, end: 20160228
  7. ZONISAMIDE. [Suspect]
     Active Substance: ZONISAMIDE
     Dosage: 200 MG DAILY
     Route: 048
     Dates: start: 20160624, end: 20160707
  8. ALEVIATIN [Concomitant]
     Active Substance: PHENYTOIN SODIUM
     Indication: PRODUCT USED FOR UNKNOWN INDICATION
     Dosage: 200 MG DAILY
     Route: 048
     Dates: end: 20150102
  9. E KEPPRA [Suspect]
     Active Substance: LEVETIRACETAM
     Dosage: 2000 MG DAILY
     Route: 048
     Dates: start: 20141111, end: 20150907
  10. E KEPPRA [Suspect]
     Active Substance: LEVETIRACETAM
     Indication: EPILEPSY
     Dosage: 1000 MG
     Route: 048
     Dates: start: 20130515, end: 20140623
  11. ALEVIATIN [Concomitant]
     Active Substance: PHENYTOIN SODIUM
     Dosage: 100 MG DAILY
     Route: 048
     Dates: start: 20150103, end: 20150316
  12. ZONISAMIDE. [Suspect]
     Active Substance: ZONISAMIDE
     Indication: PRODUCT USED FOR UNKNOWN INDICATION
     Dosage: 100 MG DAILY
     Route: 048
     Dates: start: 20160524, end: 20160623
  13. TOPINA [Suspect]
     Active Substance: TOPIRAMATE
     Indication: PRODUCT USED FOR UNKNOWN INDICATION
     Dosage: 25 MG DAILY
     Route: 048
     Dates: start: 20160725
  14. SODIUM VALPROATE [Suspect]
     Active Substance: VALPROATE SODIUM
     Dosage: 800 MG DAILY
     Route: 048
     Dates: start: 20160301, end: 20160411

REACTIONS (1)
  - Tubulointerstitial nephritis [Not Recovered/Not Resolved]

NARRATIVE: CASE EVENT DATE: 201411
